FAERS Safety Report 23952758 (Version 1)
Quarter: 2024Q2

REPORT INFORMATION
  Report Type: Spontaneous
  Country: US (occurrence: US)
  Receive Date: 20240607
  Receipt Date: 20240607
  Transmission Date: 20240716
  Serious: No
  Sender: FDA-Public Use
  Company Number: US-GE HEALTHCARE-2024CSU005525

PATIENT
  Sex: Female

DRUGS (1)
  1. CERIANNA [Suspect]
     Active Substance: FLUOROESTRADIOL F-18
     Indication: Diagnostic procedure
     Dosage: 185 MBQ, TOTAL
     Route: 065

REACTIONS (1)
  - False negative investigation result [Recovered/Resolved]
